FAERS Safety Report 25321708 (Version 2)
Quarter: 2025Q3

REPORT INFORMATION
  Report Type: Spontaneous
  Country: EU (occurrence: EU)
  Receive Date: 20250516
  Receipt Date: 20250810
  Transmission Date: 20251020
  Serious: Yes (Other)
  Sender: ALEXION PHARMACEUTICALS
  Company Number: EU-ASTRAZENECA-202505GLO007509DE

PATIENT
  Age: 77 Year
  Sex: Male

DRUGS (1)
  1. OLAPARIB [Suspect]
     Active Substance: OLAPARIB
     Indication: Pancreatic carcinoma metastatic
     Route: 065

REACTIONS (5)
  - Malignant neoplasm progression [Unknown]
  - Metastases to liver [Unknown]
  - Anaemia [Unknown]
  - Dyspnoea exertional [Unknown]
  - Off label use [Unknown]
